FAERS Safety Report 8846974 (Version 2)
Quarter: 2013Q3

REPORT INFORMATION
  Report Type: Spontaneous
  Country: US (occurrence: US)
  Receive Date: 20121018
  Receipt Date: 20130909
  Transmission Date: 20140515
  Serious: Yes (Hospitalization, Disabling, Other)
  Sender: FDA-Public Use
  Company Number: US-009507513-1210USA003963

PATIENT
  Sex: Female

DRUGS (5)
  1. FOSAMAX [Suspect]
     Indication: OSTEOPOROSIS PROPHYLAXIS
     Dosage: 70 MG, QW
     Route: 048
     Dates: end: 2007
  2. CORTICOSTEROIDS (UNSPECIFIED) [Concomitant]
     Indication: ASTHMA
     Dosage: UNK
     Dates: start: 1989, end: 2007
  3. HORMONES (UNSPECIFIED) [Concomitant]
     Indication: MENOPAUSE
     Dosage: UNK
     Dates: start: 1998, end: 1999
  4. ADVAIR [Concomitant]
     Indication: ASTHMA
     Dosage: UNK
     Dates: start: 1989
  5. ALBUTEROL [Concomitant]
     Indication: ASTHMA
     Dosage: UNK
     Dates: start: 1989

REACTIONS (46)
  - Femur fracture [Unknown]
  - Intramedullary rod insertion [Unknown]
  - Acute coronary syndrome [Unknown]
  - Angina pectoris [Unknown]
  - Coronary artery disease [Not Recovered/Not Resolved]
  - Hypertension [Not Recovered/Not Resolved]
  - Arthropathy [Not Recovered/Not Resolved]
  - Spinal disorder [Not Recovered/Not Resolved]
  - Spinal disorder [Not Recovered/Not Resolved]
  - Arthropathy [Not Recovered/Not Resolved]
  - Osteoporosis [Not Recovered/Not Resolved]
  - Osteopenia [Unknown]
  - Rheumatoid arthritis [Unknown]
  - Ulna fracture [Unknown]
  - Ulna fracture [Unknown]
  - Wrist surgery [Unknown]
  - Foot fracture [Unknown]
  - Head injury [Unknown]
  - Deep vein thrombosis [Unknown]
  - Deep vein thrombosis [Unknown]
  - Arthroscopy [Unknown]
  - Chest pain [Unknown]
  - Head injury [Unknown]
  - Neck injury [Unknown]
  - Colitis ischaemic [Unknown]
  - Abdominal operation [Unknown]
  - Contusion [Unknown]
  - Staphylococcal infection [Unknown]
  - Post-traumatic neck syndrome [Unknown]
  - Bronchitis [Unknown]
  - Blood cholesterol increased [Unknown]
  - Localised infection [Unknown]
  - Epistaxis [Unknown]
  - Inguinal hernia repair [Unknown]
  - Foot operation [Unknown]
  - Foot operation [Unknown]
  - Synovial cyst [Unknown]
  - Knee operation [Unknown]
  - Herpes zoster [Unknown]
  - Depression [Unknown]
  - Dizziness [Unknown]
  - Headache [Unknown]
  - Pain in extremity [Unknown]
  - Pain in extremity [Unknown]
  - Oedema peripheral [Not Recovered/Not Resolved]
  - Oedema peripheral [Unknown]
